FAERS Safety Report 4479085-2 (Version None)
Quarter: 2004Q4

REPORT INFORMATION
  Report Type: 
  Country: None (occurrence: None)
  Receive Date: 20040923
  Receipt Date: 20040701
  Transmission Date: 20050328
  Serious: No
  Sender: FDA-Public Use
  Company Number: 207559

PATIENT
  Age: 73 Year
  Sex: Female

DRUGS (8)
  1. AVASTIN [Suspect]
     Indication: COLORECTAL CANCER METASTATIC
     Dosage: 260MG, QW2, INTRAVENOUS
     Route: 042
     Dates: start: 20040402
  2. OXALIPLATIN (OXALIPLATIN) [Concomitant]
  3. FLUOROURACIL [Concomitant]
  4. LEUCOVORIN (LEUCOVORIN CALCIUM) [Concomitant]
  5. LIPITOR [Concomitant]
  6. FOSAMAX [Concomitant]
  7. B12 (CYANOCOBALAMIN) [Concomitant]
  8. B6 (PYRIDOXINE HYDROCHLORIDE) [Concomitant]

REACTIONS (1)
  - DEEP VEIN THROMBOSIS [None]
